FAERS Safety Report 9782749 (Version 1)
Quarter: 2013Q4

REPORT INFORMATION
  Report Type: Spontaneous
  Country: US (occurrence: None)
  Receive Date: 20131224
  Receipt Date: 20131224
  Transmission Date: 20140711
  Serious: Yes (Hospitalization, Disabling)
  Sender: FDA-Public Use
  Company Number: None

PATIENT
  Age: 51 Year
  Sex: Female
  Weight: 79.38 kg

DRUGS (1)
  1. LEVAQUIN [Suspect]
     Indication: SINUSITIS
     Dosage: 1 PILL ONCE DAILY
     Route: 048
     Dates: start: 20120130, end: 20120206

REACTIONS (17)
  - Musculoskeletal stiffness [None]
  - Myalgia [None]
  - Arthralgia [None]
  - Fatigue [None]
  - Tendon pain [None]
  - Arthralgia [None]
  - Arthralgia [None]
  - Arthralgia [None]
  - Musculoskeletal pain [None]
  - Pain in extremity [None]
  - Pain in extremity [None]
  - Disturbance in attention [None]
  - Educational problem [None]
  - Lethargy [None]
  - Gastric disorder [None]
  - Gastrointestinal disorder [None]
  - Feeling abnormal [None]
